FAERS Safety Report 6228543-9 (Version None)
Quarter: 2009Q2

REPORT INFORMATION
  Report Type: 
  Country: None (occurrence: None)
  Receive Date: 20090612
  Receipt Date: 20090603
  Transmission Date: 20091009
  Serious: Yes (Other)
  Sender: FDA-Public Use
  Company Number: PHHY2009MX22067

PATIENT
  Age: 81 Year
  Sex: Male

DRUGS (2)
  1. STALEVO 100 [Suspect]
     Indication: PARKINSON'S DISEASE
     Dosage: 2.5 TABLETS DAILY
     Route: 048
     Dates: start: 20070601, end: 20090525
  2. STALEVO 100 [Suspect]
     Dosage: 2 TABLETS DAILY
     Route: 048
     Dates: start: 20090525

REACTIONS (3)
  - BLOOD PRESSURE FLUCTUATION [None]
  - FALL [None]
  - HEAD INJURY [None]
